FAERS Safety Report 10008923 (Version 1)
Quarter: 2014Q1

REPORT INFORMATION
  Report Type: Spontaneous
  Country: US (occurrence: US)
  Receive Date: 20140313
  Receipt Date: 20140313
  Transmission Date: 20141002
  Serious: No
  Sender: FDA-Public Use
  Company Number: US-INCYTE CORPORATION-2012IN000905

PATIENT
  Age: 73 Year
  Sex: Female

DRUGS (4)
  1. JAKAFI [Suspect]
     Indication: MYELOFIBROSIS
     Dosage: 10 MG, BID
     Route: 048
     Dates: start: 201107
  2. LEVOTHYROXINE [Concomitant]
     Dosage: 75 MCG, QD
     Route: 048
  3. ALEVE [Concomitant]
     Dosage: QD, OR QOD
     Route: 048
  4. AMBIEN [Concomitant]
     Dosage: 5 MG, PRN

REACTIONS (3)
  - Increased appetite [Unknown]
  - Contusion [Unknown]
  - Weight increased [Unknown]
